FAERS Safety Report 22014571 (Version 1)
Quarter: 2023Q1

REPORT INFORMATION
  Report Type: Report from Study
  Country: US (occurrence: US)
  Receive Date: 20230221
  Receipt Date: 20230221
  Transmission Date: 20230418
  Serious: Yes (Hospitalization, Other)
  Sender: FDA-Public Use
  Company Number: US-GILEAD-2023-0617437

PATIENT
  Age: 19 Year
  Sex: Female

DRUGS (8)
  1. AZTREONAM LYSINE [Suspect]
     Active Substance: AZTREONAM LYSINE
     Indication: Cystic fibrosis
     Dosage: 75 MG, TID,28 DAYS ON THEN TAKE 28 DAYS OFF
     Route: 055
     Dates: start: 20220928
  2. AUGMENTIN [Concomitant]
     Active Substance: AMOXICILLIN\CLAVULANATE POTASSIUM
  3. IRON [Concomitant]
     Active Substance: IRON
  4. B COMPLEX WITH C [Concomitant]
  5. AMOXICILLIN [Concomitant]
     Active Substance: AMOXICILLIN
  6. ZENPEP [Concomitant]
     Active Substance: PANCRELIPASE AMYLASE\PANCRELIPASE LIPASE\PANCRELIPASE PROTEASE
  7. FAMOTIDINE [Concomitant]
     Active Substance: FAMOTIDINE
  8. CIPROFLOXACIN HYDROCHLORIDE [Concomitant]
     Active Substance: CIPROFLOXACIN HYDROCHLORIDE

REACTIONS (1)
  - Cystic fibrosis [Not Recovered/Not Resolved]
